FAERS Safety Report 16007485 (Version 1)
Quarter: 2019Q1

REPORT INFORMATION
  Report Type: Spontaneous
  Country: US (occurrence: US)
  Receive Date: 20190226
  Receipt Date: 20190226
  Transmission Date: 20190418
  Serious: No
  Sender: FDA-Public Use
  Company Number: US-BAYER-2019-039345

PATIENT
  Sex: Female

DRUGS (1)
  1. ALEVE [Suspect]
     Active Substance: NAPROXEN SODIUM
     Indication: PROCEDURAL PAIN
     Dosage: 1 DF, BID, 1 IN THE MORNING AND 1 AT BEDTIME

REACTIONS (1)
  - Drug effective for unapproved indication [Unknown]
